FAERS Safety Report 18706356 (Version 1)
Quarter: 2021Q1

REPORT INFORMATION
  Report Type: Spontaneous
  Country: ES (occurrence: ES)
  Receive Date: 20210106
  Receipt Date: 20210106
  Transmission Date: 20210419
  Serious: Yes (Other)
  Sender: FDA-Public Use
  Company Number: None

PATIENT
  Age: 18 Year
  Sex: Male
  Weight: 62 kg

DRUGS (3)
  1. VENLAFAXINE [Suspect]
     Active Substance: VENLAFAXINE HYDROCHLORIDE
  2. ABILIFY [Suspect]
     Active Substance: ARIPIPRAZOLE
     Dosage: ?          QUANTITY:1 OUNCE(S);?
     Route: 048
     Dates: start: 20171228, end: 20180506
  3. XEPLION [Suspect]
     Active Substance: PALIPERIDONE PALMITATE

REACTIONS (1)
  - Sexual dysfunction [None]

NARRATIVE: CASE EVENT DATE: 20180506
